FAERS Safety Report 4345800-1 (Version None)
Quarter: 2004Q2

REPORT INFORMATION
  Report Type: 
  Country: None (occurrence: None)
  Receive Date: 20040421
  Receipt Date: 20040407
  Transmission Date: 20050107
  Serious: Yes (Hospitalization)
  Sender: FDA-Public Use
  Company Number: 04P-167-0246728-00

PATIENT
  Age: 41 Year
  Sex: Female
  Weight: 56 kg

DRUGS (8)
  1. HUMIRA [Suspect]
     Indication: RHEUMATOID ARTHRITIS
     Dosage: 40 MG, SUBCUTANEOUS
     Route: 058
     Dates: start: 20030410, end: 20030416
  2. PREDNISOLONE [Concomitant]
  3. LEKOVIT CA [Concomitant]
  4. ACETAMINOPHEN AND CODEINE PHOSPHATE [Concomitant]
  5. ALENDRONATE SODIUM [Concomitant]
  6. IRON [Concomitant]
  7. TRAMADOL HCL [Concomitant]
  8. WARFARIN SODIUM [Concomitant]

REACTIONS (2)
  - COMPLICATIONS OF MATERNAL EXPOSURE TO THERAPEUTIC DRUGS [None]
  - POSTPARTUM VENOUS THROMBOSIS [None]
